FAERS Safety Report 21701007 (Version 1)
Quarter: 2022Q4

REPORT INFORMATION
  Report Type: Spontaneous
  Country: US (occurrence: None)
  Receive Date: 20221207
  Receipt Date: 20221207
  Transmission Date: 20230113
  Serious: No
  Sender: FDA-Public Use
  Company Number: None

PATIENT
  Sex: Female

DRUGS (1)
  1. STELARA [Suspect]
     Active Substance: USTEKINUMAB
     Indication: Inflammatory bowel disease
     Dosage: OTHER QUANTITY : 90/1 MG/ML;?OTHER FREQUENCY : 1 EVERY 6 WKS;?
     Dates: start: 20220526

REACTIONS (2)
  - Abdominal pain [None]
  - Condition aggravated [None]
